FAERS Safety Report 8057152-4 (Version None)
Quarter: 2012Q1

REPORT INFORMATION
  Report Type: 
  Country: None (occurrence: None)
  Receive Date: 20120119
  Receipt Date: 20120111
  Transmission Date: 20120608
  Serious: Yes (Hospitalization)
  Sender: FDA-Public Use
  Company Number: JP-ABBOTT-12P-087-0894406-00

PATIENT
  Sex: Female

DRUGS (10)
  1. MOZUN [Concomitant]
     Indication: PRODUCT USED FOR UNKNOWN INDICATION
     Dosage: DAY
     Route: 048
  2. MUCODYNE [Concomitant]
     Indication: BRONCHITIS CHRONIC
  3. MUCOSOLVAN L [Concomitant]
     Indication: BRONCHIECTASIS
     Dosage: DAY
     Route: 048
  4. AMLODIPINE [Concomitant]
     Indication: HYPERTENSION
     Dosage: DAY
     Route: 048
  5. SEROQUEL [Concomitant]
     Route: 048
  6. MUCOSOLVAN L [Concomitant]
     Indication: BRONCHITIS CHRONIC
  7. SEROQUEL [Concomitant]
     Indication: PRODUCT USED FOR UNKNOWN INDICATION
     Dosage: DAY
     Route: 048
  8. ALINAMIN F [Concomitant]
     Indication: PRODUCT USED FOR UNKNOWN INDICATION
     Dosage: DAY
     Route: 048
  9. MUCODYNE [Concomitant]
     Indication: BRONCHIECTASIS
     Dosage: DAY
     Route: 048
  10. AKINETON [Suspect]
     Indication: PRODUCT USED FOR UNKNOWN INDICATION
     Route: 048

REACTIONS (1)
  - NEUROLEPTIC MALIGNANT SYNDROME [None]
